FAERS Safety Report 9852209 (Version 1)
Quarter: 2014Q1

REPORT INFORMATION
  Report Type: Spontaneous
  Country: KR (occurrence: KR)
  Receive Date: 20140129
  Receipt Date: 20140129
  Transmission Date: 20141002
  Serious: Yes (Hospitalization, Other)
  Sender: FDA-Public Use
  Company Number: KR-BAYER-2014-009708

PATIENT
  Sex: Female

DRUGS (3)
  1. AVELOX [Suspect]
     Route: 048
  2. ZYVOX [Suspect]
     Indication: INFLAMMATION
  3. ZITHROMAX [Concomitant]

REACTIONS (7)
  - Pneumonia [None]
  - Diarrhoea [None]
  - Platelet count decreased [None]
  - Red blood cell count decreased [None]
  - Vomiting [None]
  - Haemoptysis [None]
  - Oral disorder [None]
